FAERS Safety Report 23642150 (Version 3)
Quarter: 2024Q4

REPORT INFORMATION
  Report Type: Spontaneous
  Country: CA (occurrence: CA)
  Receive Date: 20240318
  Receipt Date: 20241016
  Transmission Date: 20250115
  Serious: Yes (Hospitalization, Other)
  Sender: ACCORD
  Company Number: None

PATIENT
  Age: 75 Year
  Sex: Female
  Weight: 70 kg

DRUGS (33)
  1. ATORVASTATIN [Suspect]
     Active Substance: ATORVASTATIN
     Indication: Dyslipidaemia
  2. GABAPENTIN [Suspect]
     Active Substance: GABAPENTIN
     Indication: Arthralgia
  3. PREGABALIN [Suspect]
     Active Substance: PREGABALIN
     Indication: Arthralgia
     Route: 065
  4. TELMISARTAN [Suspect]
     Active Substance: TELMISARTAN
     Indication: Hypertension
     Route: 065
  5. AZOPT [Suspect]
     Active Substance: BRINZOLAMIDE
     Indication: Glaucoma
     Dosage: OPHTHALMIC?SUSPENSION OPHTHALMIC
  6. ZOPICLONE [Suspect]
     Active Substance: ZOPICLONE
     Indication: Insomnia
     Route: 065
  7. BRINZOLAMIDE\TIMOLOL [Suspect]
     Active Substance: BRINZOLAMIDE\TIMOLOL
     Indication: Glaucoma
     Dosage: OPHTHALMIC
  8. DICLOFENAC SODIUM [Suspect]
     Active Substance: DICLOFENAC SODIUM
     Indication: Arthralgia
     Dosage: OPHTHALMIC
  9. ESTRADIOL [Suspect]
     Active Substance: ESTRADIOL
     Indication: Menopausal symptoms
     Route: 065
  10. IBUPROFEN [Suspect]
     Active Substance: IBUPROFEN
     Indication: Arthralgia
     Route: 065
  11. IPRATROPIUM BROMIDE [Suspect]
     Active Substance: IPRATROPIUM BROMIDE
     Indication: Rhinitis
     Dosage: INTRA-NASAL
  12. LATANOPROST [Suspect]
     Active Substance: LATANOPROST
     Indication: Glaucoma
     Dosage: SOLUTION OPHTHALMIC?OPHTHALMIC
  13. NAPROXEN [Suspect]
     Active Substance: NAPROXEN
     Indication: Arthralgia
     Route: 065
  14. ESTRADIOL [Suspect]
     Active Substance: ESTRADIOL
     Indication: Product used for unknown indication
     Dosage: PATCH
     Route: 062
  15. PSEUDOEPHEDRINE HYDROCHLORIDE [Suspect]
     Active Substance: PSEUDOEPHEDRINE HYDROCHLORIDE
     Indication: Product used for unknown indication
     Route: 065
  16. PYRIDOXINE HYDROCHLORIDE [Suspect]
     Active Substance: PYRIDOXINE HYDROCHLORIDE
     Indication: Product used for unknown indication
     Route: 065
  17. VITAMIN D3 [Suspect]
     Active Substance: CHOLECALCIFEROL
     Indication: Product used for unknown indication
     Route: 065
  18. ACETAMINOPHEN [Suspect]
     Active Substance: ACETAMINOPHEN
     Indication: Product used for unknown indication
  19. CALCIUM CARBONATE [Suspect]
     Active Substance: CALCIUM CARBONATE
     Indication: Product used for unknown indication
  20. CLONAZEPAM [Suspect]
     Active Substance: CLONAZEPAM
     Indication: Product used for unknown indication
  21. AMOXICILLIN TRIHYDRATE [Suspect]
     Active Substance: AMOXICILLIN
     Indication: Sinusitis
  22. IPRATROPIUM BROMIDE [Suspect]
     Active Substance: IPRATROPIUM BROMIDE
     Indication: Product used for unknown indication
  23. PYRIDOXINE [Suspect]
     Active Substance: PYRIDOXINE
     Indication: Product used for unknown indication
  24. VITAMIN B6 [Concomitant]
     Active Substance: PYRIDOXINE HYDROCHLORIDE
     Indication: Product used for unknown indication
     Route: 065
  25. ACETAMINOPHEN\PSEUDOEPHEDRINE [Concomitant]
     Active Substance: ACETAMINOPHEN\PSEUDOEPHEDRINE
     Indication: Product used for unknown indication
     Route: 065
  26. ATORVASTATIN CALCIUM [Concomitant]
     Active Substance: ATORVASTATIN CALCIUM
     Indication: Dyslipidaemia
     Route: 065
  27. CHOLECALCIFEROL [Concomitant]
     Active Substance: CHOLECALCIFEROL
     Indication: Product used for unknown indication
     Route: 065
  28. BRINZOLAMIDE\TIMOLOL [Suspect]
     Active Substance: BRINZOLAMIDE\TIMOLOL
     Indication: Glaucoma
     Route: 065
  29. TELMISARTAN [Suspect]
     Active Substance: TELMISARTAN
     Indication: Glaucoma
     Route: 065
  30. TELMISARTAN [Suspect]
     Active Substance: TELMISARTAN
     Indication: Glaucoma
     Dosage: OPHTHALMIC
     Route: 065
  31. ZOPICLONE [Suspect]
     Active Substance: ZOPICLONE
     Indication: Sinusitis
     Route: 065
  32. ZOPICLONE [Suspect]
     Active Substance: ZOPICLONE
     Indication: Dyslipidaemia
     Route: 065
  33. BRINZOLAMIDE\TIMOLOL [Suspect]
     Active Substance: BRINZOLAMIDE\TIMOLOL
     Indication: Glaucoma
     Dosage: OPHTHALMIC

REACTIONS (6)
  - Toxic epidermal necrolysis [Recovered/Resolved]
  - Haemoglobin decreased [Recovered/Resolved]
  - Nikolsky^s sign positive [Recovered/Resolved]
  - Rash erythematous [Recovered/Resolved]
  - Rash papular [Recovered/Resolved]
  - Off label use [Recovered/Resolved]
